FAERS Safety Report 25287097 (Version 1)
Quarter: 2025Q2

REPORT INFORMATION
  Report Type: Spontaneous
  Country: US (occurrence: None)
  Receive Date: 20250508
  Receipt Date: 20250508
  Transmission Date: 20250716
  Serious: Yes (Hospitalization, Other)
  Sender: FDA-CTU
  Company Number: None

PATIENT
  Age: 29 Year
  Sex: Male

DRUGS (1)
  1. RINVOQ [Suspect]
     Active Substance: UPADACITINIB
     Indication: Colitis ulcerative
     Dosage: 30MG QD

REACTIONS (5)
  - Colitis ulcerative [None]
  - Diarrhoea haemorrhagic [None]
  - Abdominal pain [None]
  - Pyrexia [None]
  - Frequent bowel movements [None]
